FAERS Safety Report 16644793 (Version 1)
Quarter: 2019Q3

REPORT INFORMATION
  Report Type: Spontaneous
  Country: CN (occurrence: CN)
  Receive Date: 20190729
  Receipt Date: 20190729
  Transmission Date: 20191004
  Serious: Yes (Other)
  Sender: FDA-Public Use
  Company Number: CN-MYLANLABS-2019M1070838

PATIENT
  Age: 78 Year
  Sex: Female

DRUGS (1)
  1. CALCITONIN SALMON MYLAN [Suspect]
     Active Substance: CALCITONIN SALMON
     Indication: BONE DENSITY INCREASED
     Dosage: 50 INTERNATIONAL UNIT, QD
     Route: 030
     Dates: start: 20190618, end: 20190619

REACTIONS (6)
  - Cold sweat [Recovering/Resolving]
  - Nausea [Recovering/Resolving]
  - Hyperpyrexia [Recovering/Resolving]
  - Chest discomfort [Recovering/Resolving]
  - Vomiting [Recovering/Resolving]
  - Chills [Recovering/Resolving]

NARRATIVE: CASE EVENT DATE: 20190619
